FAERS Safety Report 7146017-8 (Version None)
Quarter: 2010Q4

REPORT INFORMATION
  Report Type: 
  Country: None (occurrence: None)
  Receive Date: 20101208
  Receipt Date: 20101130
  Transmission Date: 20110411
  Serious: Yes (Other)
  Sender: FDA-Public Use
  Company Number: CA-JNJFOC-20100709132

PATIENT
  Sex: Female
  Weight: 68.1 kg

DRUGS (24)
  1. REMICADE [Suspect]
     Indication: BEHCET'S SYNDROME
     Route: 042
  2. REMICADE [Suspect]
     Route: 042
  3. REMICADE [Suspect]
     Route: 042
  4. REMICADE [Suspect]
     Indication: CROHN'S DISEASE
     Route: 042
  5. REMICADE [Suspect]
     Route: 042
  6. REMICADE [Suspect]
     Route: 042
  7. PRILOSEC [Concomitant]
  8. SYMBICORT [Concomitant]
  9. BRICANYL [Concomitant]
  10. NYSTATIN [Concomitant]
  11. BUSCOPAN [Concomitant]
  12. DOCUSATE [Concomitant]
  13. FOSAMAX [Concomitant]
  14. CALCIUM [Concomitant]
  15. METHADONE [Concomitant]
  16. DOMPERIDONE [Concomitant]
  17. ASPIRIN [Concomitant]
  18. PREDNISONE [Concomitant]
  19. ZOPICLONE [Concomitant]
  20. VITAMIN B-12 [Concomitant]
  21. TRAZODONE [Concomitant]
  22. PROZAC [Concomitant]
  23. VENTOLIN [Concomitant]
  24. MILK OF MAGNESIA [Concomitant]

REACTIONS (5)
  - FEELING HOT [None]
  - INFUSION RELATED REACTION [None]
  - PHARYNGITIS STREPTOCOCCAL [None]
  - PRURITUS [None]
  - THROAT LESION [None]
